FAERS Safety Report 6100421-5 (Version None)
Quarter: 2009Q1

REPORT INFORMATION
  Report Type: 
  Country: None (occurrence: None)
  Receive Date: 20090227
  Receipt Date: 20090227
  Transmission Date: 20090719
  Serious: Yes (Life-Threatening, Hospitalization)
  Sender: FDA-Public Use
  Company Number: None

PATIENT
  Sex: Female
  Weight: 54.4316 kg

DRUGS (4)
  1. ZOMETA [Suspect]
     Indication: MULTIPLE MYELOMA
     Dosage: 4 MG MONTHLY IV
     Route: 042
     Dates: start: 20031001, end: 20060801
  2. ZOMETA [Suspect]
     Indication: OSTEOPOROSIS
     Dosage: 4 MG MONTHLY IV
     Route: 042
     Dates: start: 20031001, end: 20060801
  3. COZAAR [Concomitant]
  4. HYDROCHLOROTHIAZIDE [Concomitant]

REACTIONS (1)
  - OESOPHAGEAL CARCINOMA [None]
